FAERS Safety Report 19561781 (Version 1)
Quarter: 2021Q3

REPORT INFORMATION
  Report Type: Spontaneous
  Country: US (occurrence: US)
  Receive Date: 20210716
  Receipt Date: 20210716
  Transmission Date: 20211014
  Serious: Yes (Other)
  Sender: FDA-Public Use
  Company Number: None

PATIENT
  Sex: Female

DRUGS (1)
  1. NURTEC ODT [Suspect]
     Active Substance: RIMEGEPANT SULFATE
     Indication: MIGRAINE

REACTIONS (4)
  - Weight decreased [None]
  - Therapeutic product effect incomplete [None]
  - Dizziness [None]
  - Nausea [None]

NARRATIVE: CASE EVENT DATE: 20210716
